FAERS Safety Report 5519342-1 (Version None)
Quarter: 2007Q4

REPORT INFORMATION
  Report Type: 
  Country: None (occurrence: None)
  Receive Date: 20071114
  Receipt Date: 20071031
  Transmission Date: 20080405
  Serious: Yes (Other)
  Sender: FDA-Public Use
  Company Number: S07-ESP-05885-01

PATIENT
  Sex: Female

DRUGS (2)
  1. ESERTIA (ESCITALOPRAM) [Suspect]
  2. ALMOGRAN (ALMOTRIPTAN MALATE) [Suspect]

REACTIONS (1)
  - HYPERTENSIVE CRISIS [None]
